FAERS Safety Report 18639966 (Version 1)
Quarter: 2020Q4

REPORT INFORMATION
  Report Type: Spontaneous
  Country: US (occurrence: US)
  Receive Date: 20201220
  Receipt Date: 20201220
  Transmission Date: 20210114
  Serious: No
  Sender: FDA-Public Use
  Company Number: US-PACIRA-202000185

PATIENT
  Age: 55 Year
  Sex: Male

DRUGS (2)
  1. EXPAREL [Suspect]
     Active Substance: BUPIVACAINE
     Indication: SHOULDER OPERATION
     Dosage: 10 ML ADMIXED WITH 15 ML OF 0.5% BUPIVACAINE
     Route: 065
     Dates: start: 20200526, end: 20200526
  2. BUPIVACAINE. [Suspect]
     Active Substance: BUPIVACAINE
     Indication: SHOULDER OPERATION
     Dosage: 15 ML ADMIXED WITH 10 ML OF EXPAREL
     Route: 065
     Dates: start: 20200526, end: 20200526

REACTIONS (2)
  - Therapeutic product effect delayed [Recovered/Resolved]
  - Pain [Recovered/Resolved]

NARRATIVE: CASE EVENT DATE: 20200526
